FAERS Safety Report 9535955 (Version 1)
Quarter: 2013Q2

REPORT INFORMATION
  Report Type: Spontaneous
  Country: US (occurrence: None)
  Receive Date: 20130507
  Receipt Date: 20130507
  Transmission Date: 20140414
  Serious: Yes (Other)
  Sender: FDA-Public Use
  Company Number: PHEH2012US024529

PATIENT
  Sex: Female
  Weight: 80.7 kg

DRUGS (5)
  1. AFINITOR [Suspect]
  2. XGEVA (DENOSUMAB) [Concomitant]
  3. ALPRAZOLAM [Concomitant]
  4. AROMASIN (EXEMESTANE) [Concomitant]
  5. LEVOTHROID (LEVOTHYROXINE SODIUM) [Concomitant]

REACTIONS (1)
  - Stomatitis [None]
